FAERS Safety Report 4737346-3 (Version None)
Quarter: 2005Q3

REPORT INFORMATION
  Report Type: 
  Country: None (occurrence: None)
  Receive Date: 20050805
  Receipt Date: 20050728
  Transmission Date: 20060218
  Serious: Yes (Hospitalization, Disabling)
  Sender: FDA-Public Use
  Company Number: 2005108983

PATIENT
  Age: 58 Year
  Sex: Female
  Weight: 53.0709 kg

DRUGS (8)
  1. CELEBREX [Suspect]
     Indication: ARTHRITIS
     Dosage: (1 IN 1 D), ORAL
     Route: 048
  2. BEXTRA [Suspect]
     Indication: ARTHRITIS
  3. VIOXX [Suspect]
     Indication: ARTHRITIS
  4. BUSPAR [Concomitant]
  5. SOMA [Concomitant]
  6. PREVACID [Concomitant]
  7. SYNTHROID [Concomitant]
  8. DARVOCET-N 100 [Concomitant]

REACTIONS (14)
  - CARDIAC DISORDER [None]
  - CONDITION AGGRAVATED [None]
  - DIABETES MELLITUS [None]
  - DRUG EFFECT DECREASED [None]
  - DRUG HYPERSENSITIVITY [None]
  - FALL [None]
  - FEELING ABNORMAL [None]
  - HYPERTENSION [None]
  - MALAISE [None]
  - MENTAL IMPAIRMENT [None]
  - MOVEMENT DISORDER [None]
  - PAIN [None]
  - PRURITUS [None]
  - WEIGHT DECREASED [None]
